FAERS Safety Report 18062622 (Version 2)
Quarter: 2020Q3

REPORT INFORMATION
  Report Type: Other
  Country: AR (occurrence: AR)
  Receive Date: 20200724
  Receipt Date: 20200819
  Transmission Date: 20201103
  Serious: Yes (Hospitalization)
  Sender: FDA-Public Use
  Company Number: AR-ROCHE-2465071

PATIENT
  Age: 76 Year
  Sex: Female

DRUGS (3)
  1. XOLAIR [Suspect]
     Active Substance: OMALIZUMAB
     Indication: ASTHMA
     Route: 030
     Dates: start: 20180613
  2. MONTELUKAST [Concomitant]
     Active Substance: MONTELUKAST SODIUM
  3. SALBUTAMOL [Concomitant]
     Active Substance: ALBUTEROL

REACTIONS (9)
  - Blood potassium decreased [Recovered/Resolved]
  - Incorrect route of product administration [Unknown]
  - Asthmatic crisis [Recovering/Resolving]
  - Microangiopathy [Unknown]
  - Chest pain [Recovered/Resolved]
  - Gait disturbance [Recovering/Resolving]
  - White matter lesion [Unknown]
  - Cerebral atrophy [Unknown]
  - Fatigue [Recovered/Resolved with Sequelae]

NARRATIVE: CASE EVENT DATE: 201907
